FAERS Safety Report 6252521-7 (Version None)
Quarter: 2009Q3

REPORT INFORMATION
  Report Type: 
  Country: None (occurrence: None)
  Receive Date: 20090701
  Receipt Date: 20090622
  Transmission Date: 20100115
  Serious: Yes (Hospitalization)
  Sender: FDA-Public Use
  Company Number: ES-ELI_LILLY_AND_COMPANY-ES200906005552

PATIENT
  Age: 86 Year
  Sex: Female

DRUGS (6)
  1. FORTEO [Suspect]
     Indication: OSTEOPOROSIS
     Dosage: 20 UG, UNK
     Route: 058
  2. PARACETAMOL [Concomitant]
  3. OMEPRAZOLE [Concomitant]
  4. MOTILIUM [Concomitant]
  5. CALCIUM [Concomitant]
  6. GABAPENTIN [Concomitant]

REACTIONS (1)
  - LUNG DISORDER [None]
